FAERS Safety Report 23783237 (Version 1)
Quarter: 2024Q2

REPORT INFORMATION
  Report Type: Spontaneous
  Country: IT (occurrence: IT)
  Receive Date: 20240425
  Receipt Date: 20240425
  Transmission Date: 20240716
  Serious: Yes (Hospitalization, Other)
  Sender: FDA-Public Use
  Company Number: IT-MINISAL02-980167

PATIENT
  Age: 51 Year
  Sex: Female

DRUGS (2)
  1. CIPROFLOXACIN [Suspect]
     Active Substance: CIPROFLOXACIN
     Indication: Tooth infection
     Dosage: 500 MILLIGRAM, TWO TIMES A DAY,1000 MG/DIE PER 10 GIORNI A MARZO 2024
     Route: 048
     Dates: start: 202403, end: 202403
  2. ETHINYL ESTRADIOL\GESTODENE [Concomitant]
     Active Substance: ETHINYL ESTRADIOL\GESTODENE
     Indication: Oral contraception
     Dosage: 1 DOSAGE FORM, ONCE A DAY(1 TABLET/DAY OF 60/15 MCG)
     Route: 048

REACTIONS (2)
  - Hemiparesis [Recovering/Resolving]
  - Peripheral artery dissection [Recovering/Resolving]

NARRATIVE: CASE EVENT DATE: 20240403
